FAERS Safety Report 16200610 (Version 2)
Quarter: 2019Q2

REPORT INFORMATION
  Report Type: Spontaneous
  Country: MX (occurrence: MX)
  Receive Date: 20190416
  Receipt Date: 20190503
  Transmission Date: 20190711
  Serious: Yes (Death)
  Sender: FDA-Public Use
  Company Number: MX-ROCHE-2303476

PATIENT
  Sex: Female

DRUGS (1)
  1. KADCYLA [Suspect]
     Active Substance: ADO-TRASTUZUMAB EMTANSINE
     Indication: BREAST CANCER METASTATIC
     Dosage: DOSAGE: 100MG + 160MG (TWO PIECES OF KADCYLA)
     Route: 065
     Dates: end: 20181130

REACTIONS (2)
  - Suspected counterfeit product [Fatal]
  - Death [Fatal]
